FAERS Safety Report 5207732-6 (Version None)
Quarter: 2006Q4

REPORT INFORMATION
  Report Type: 
  Country: None (occurrence: None)
  Receive Date: 20061030
  Receipt Date: 20060915
  Transmission Date: 20070319
  Serious: No
  Sender: FDA-Public Use
  Company Number: 2006CT000732

PATIENT
  Age: 55 Year
  Sex: Female
  Weight: 89.4 kg

DRUGS (12)
  1. VENTAVIS [Suspect]
     Indication: PULMONARY HYPERTENSION
     Dosage: 2.5 UG; 3-4X/ DAY; INH
     Route: 055
     Dates: start: 20060818, end: 20060915
  2. LASIX [Concomitant]
  3. DIGOXIN [Concomitant]
  4. HYDROCHLOROTHIAZIDE [Concomitant]
  5. POTASSIUM CHLORIDE [Concomitant]
  6. IMURAN [Concomitant]
  7. CALTRATE [Concomitant]
  8. PLAQUENIL [Concomitant]
  9. LEVOTHROID [Concomitant]
  10. NEXIUM [Concomitant]
  11. OXYGEN [Concomitant]
  12. TRACLEER [Concomitant]

REACTIONS (4)
  - AXILLARY PAIN [None]
  - FEELING JITTERY [None]
  - HEART RATE INCREASED [None]
  - MENTAL IMPAIRMENT [None]
